FAERS Safety Report 4342977-9 (Version None)
Quarter: 2004Q1

REPORT INFORMATION
  Report Type: 
  Country: None (occurrence: None)
  Receive Date: 20040325
  Receipt Date: 20040202
  Transmission Date: 20041129
  Serious: No
  Sender: FDA-Public Use
  Company Number: USA040258212

PATIENT
  Sex: Female

DRUGS (2)
  1. FORTEO [Suspect]
     Indication: BONE DISORDER
     Dates: start: 20040105
  2. COUMADIN [Concomitant]

REACTIONS (6)
  - ARTHRALGIA [None]
  - INJECTION SITE HAEMORRHAGE [None]
  - JOINT STIFFNESS [None]
  - OSTEOARTHRITIS [None]
  - PAIN IN EXTREMITY [None]
  - WEIGHT INCREASED [None]
